FAERS Safety Report 4613838-2 (Version None)
Quarter: 2005Q1

REPORT INFORMATION
  Report Type: 
  Country: None (occurrence: None)
  Receive Date: 20050315
  Receipt Date: 20050228
  Transmission Date: 20050727
  Serious: Yes (Life-Threatening)
  Sender: FDA-Public Use
  Company Number: 202531

PATIENT
  Age: 51 Year
  Sex: Female
  Weight: 75 kg

DRUGS (5)
  1. HERCEPTIN [Suspect]
     Indication: BREAST CANCER
     Dosage: 8 MG/KG, SINGLE, INTRAVENOUS; 6 MG/KG, Q3W, INTRAVENOUS
     Route: 042
     Dates: start: 20030414, end: 20030414
  2. HERCEPTIN [Suspect]
     Indication: BREAST CANCER
     Dosage: 8 MG/KG, SINGLE, INTRAVENOUS; 6 MG/KG, Q3W, INTRAVENOUS
     Route: 042
     Dates: start: 20030505, end: 20030908
  3. LEVOTHYROXINE SODIUM [Concomitant]
  4. EFFEXOR [Concomitant]
  5. COVERSYL (PERINDOPRIL) [Concomitant]

REACTIONS (4)
  - CHILLS [None]
  - CYANOSIS [None]
  - MYALGIA [None]
  - MYOCLONUS [None]
